FAERS Safety Report 5360258-1 (Version None)
Quarter: 2007Q2

REPORT INFORMATION
  Report Type: 
  Country: None (occurrence: None)
  Receive Date: 20070530
  Receipt Date: 20070209
  Transmission Date: 20071010
  Serious: No
  Sender: FDA-Public Use
  Company Number: 2007PV029914

PATIENT
  Age: 45 Year
  Sex: Male
  Weight: 141.5223 kg

DRUGS (7)
  1. BYETTA [Suspect]
     Indication: DIABETES MELLITUS NON-INSULIN-DEPENDENT
     Dosage: SEE IMAGE
     Route: 058
     Dates: start: 20061211
  2. BYETTA [Suspect]
     Indication: DIABETES MELLITUS NON-INSULIN-DEPENDENT
     Dosage: SEE IMAGE
     Route: 058
     Dates: start: 20070111
  3. HUMALOG [Concomitant]
  4. HUMULIN N [Concomitant]
  5. GLIPIZIDE [Concomitant]
  6. METFORMIN HCL [Concomitant]
  7. AVANDARYL [Concomitant]

REACTIONS (6)
  - ABDOMINAL DISTENSION [None]
  - BLOOD GLUCOSE DECREASED [None]
  - BLOOD GLUCOSE INCREASED [None]
  - DECREASED APPETITE [None]
  - INCREASED APPETITE [None]
  - STOMACH DISCOMFORT [None]
